FAERS Safety Report 9314133 (Version 1)
Quarter: 2013Q2

REPORT INFORMATION
  Report Type: Spontaneous
  Country: CH (occurrence: CH)
  Receive Date: 20130529
  Receipt Date: 20130529
  Transmission Date: 20140414
  Serious: Yes (Hospitalization)
  Sender: FDA-Public Use
  Company Number: CH-UCBSA-086562

PATIENT
  Age: 49 Year
  Sex: Male

DRUGS (7)
  1. KEPPRA [Suspect]
     Indication: NEUROLOGICAL EXAMINATION ABNORMAL
     Route: 048
     Dates: end: 20121220
  2. SEROQUEL [Suspect]
     Indication: SLEEP DISORDER
     Route: 048
     Dates: end: 20121214
  3. ENTUMIN [Suspect]
     Indication: SLEEP DISORDER
     Route: 048
     Dates: end: 20121214
  4. DORMICUM [Concomitant]
     Route: 048
  5. METHADON [Concomitant]
     Route: 048
  6. SERESTRA [Concomitant]
     Route: 048
  7. PANTOZOL [Concomitant]
     Route: 048

REACTIONS (7)
  - Extrapyramidal disorder [Recovering/Resolving]
  - Cogwheel rigidity [Not Recovered/Not Resolved]
  - Blood creatine phosphokinase increased [Recovered/Resolved]
  - Neutropenia [Recovered/Resolved]
  - Injection site infection [Recovered/Resolved]
  - Medication error [Recovered/Resolved]
  - Crush injury [Unknown]
